FAERS Safety Report 19039251 (Version 1)
Quarter: 2021Q1

REPORT INFORMATION
  Report Type: Spontaneous
  Country: CN (occurrence: CN)
  Receive Date: 20210322
  Receipt Date: 20210322
  Transmission Date: 20210420
  Serious: Yes (Other)
  Sender: FDA-Public Use
  Company Number: CN-PFIZER INC-2021284097

PATIENT
  Age: 63 Year
  Sex: Male

DRUGS (9)
  1. MEROPENEM. [Suspect]
     Active Substance: MEROPENEM
     Dosage: UNK(STOP 6 D)
     Dates: start: 20200213
  2. MEROPENEM. [Suspect]
     Active Substance: MEROPENEM
     Dosage: UNK(STOP 33 D)
     Dates: start: 202002, end: 20200311
  3. MEROPENEM. [Suspect]
     Active Substance: MEROPENEM
     Dosage: UNK(STOP 3 D)
     Dates: start: 20200210
  4. MEROPENEM. [Suspect]
     Active Substance: MEROPENEM
     Dosage: UNK( (BEFORE 3 D)
     Dates: start: 20200121
  5. MEROPENEM. [Suspect]
     Active Substance: MEROPENEM
     Dosage: UNK((BEFORE 1 D)
     Dates: start: 20200123
  6. MEROPENEM. [Suspect]
     Active Substance: MEROPENEM
     Dosage: UNK((AFTER 12 D)
     Dates: start: 20200205
  7. MEROPENEM. [Suspect]
     Active Substance: MEROPENEM
     Dosage: UNK((AFTER 5 D)
     Dates: start: 20200129
  8. MEROPENEM. [Suspect]
     Active Substance: MEROPENEM
     Dosage: UNK(STOP 1 D)
     Dates: start: 20200208
  9. MEROPENEM. [Suspect]
     Active Substance: MEROPENEM
     Indication: EOSINOPHILIC PNEUMONIA
     Dosage: 1 G, 2X/DAY (Q 12 H DRIP INFUSIONS)

REACTIONS (1)
  - Eosinophilic pneumonia acute [Recovered/Resolved]

NARRATIVE: CASE EVENT DATE: 202001
